FAERS Safety Report 5680749-3 (Version None)
Quarter: 2008Q1

REPORT INFORMATION
  Report Type: 
  Country: None (occurrence: None)
  Receive Date: 20080326
  Receipt Date: 20080317
  Transmission Date: 20080703
  Serious: Yes (Other)
  Sender: FDA-Public Use
  Company Number: JP-BOEHRINGER INGELHEIM GMBH, GERMANY-2008-BP-02834NB

PATIENT
  Sex: Female
  Weight: 12 kg

DRUGS (8)
  1. MICARDIS [Suspect]
     Indication: RENAL FAILURE CHRONIC
     Route: 048
     Dates: start: 20070712, end: 20080123
  2. ZADITEN [Concomitant]
     Indication: ASTHMA
     Route: 048
     Dates: start: 20060516
  3. MYSTAN [Concomitant]
     Indication: EPILEPSY
     Route: 048
     Dates: start: 20060301
  4. PHENOBARBITAL TAB [Concomitant]
     Indication: EPILEPSY
     Route: 048
     Dates: start: 20061101
  5. ALFAROL [Concomitant]
     Indication: RICKETS
     Route: 048
     Dates: start: 20060801
  6. ONON [Concomitant]
     Indication: ASTHMA
     Route: 048
     Dates: start: 20060601
  7. MIYA BM (CLOSTRIDIUM BUTYRICUM) [Concomitant]
     Indication: DIARRHOEA
     Route: 048
     Dates: start: 20050101
  8. MUCODYNE [Concomitant]
     Indication: ASTHMA
     Route: 048
     Dates: start: 20050101

REACTIONS (2)
  - CONVULSION [None]
  - HYPOGLYCAEMIA [None]
